FAERS Safety Report 23381682 (Version 1)
Quarter: 2024Q1

REPORT INFORMATION
  Report Type: Spontaneous
  Country: GR (occurrence: GR)
  Receive Date: 20240109
  Receipt Date: 20240109
  Transmission Date: 20240409
  Serious: Yes (Other)
  Sender: FDA-Public Use
  Company Number: GR-OPELLA-2024OHG000626

PATIENT
  Age: 57 Year
  Sex: Female

DRUGS (10)
  1. LEVOCETIRIZINE HYDROCHLORIDE [Suspect]
     Active Substance: LEVOCETIRIZINE HYDROCHLORIDE
     Indication: Product used for unknown indication
  2. HYDROCORTISONE [Suspect]
     Active Substance: HYDROCORTISONE
     Indication: Product used for unknown indication
  3. PREDNISOLONE [Suspect]
     Active Substance: PREDNISOLONE
     Indication: Product used for unknown indication
  4. CLARITHROMYCIN [Suspect]
     Active Substance: CLARITHROMYCIN
     Indication: Product used for unknown indication
  5. IOMEPROL [Suspect]
     Active Substance: IOMEPROL
     Indication: Product used for unknown indication
  6. CLAVULANIC ACID [Suspect]
     Active Substance: CLAVULANIC ACID
     Indication: Product used for unknown indication
  7. IOPROMIDE [Suspect]
     Active Substance: IOPROMIDE
     Indication: Product used for unknown indication
  8. IODIXANOL [Suspect]
     Active Substance: IODIXANOL
     Indication: Product used for unknown indication
  9. METHYLPREDNISOLONE [Suspect]
     Active Substance: METHYLPREDNISOLONE
     Indication: Product used for unknown indication
  10. CLINDAMYCIN [Suspect]
     Active Substance: CLINDAMYCIN
     Indication: Product used for unknown indication

REACTIONS (1)
  - Anaphylactic reaction [Unknown]
